FAERS Safety Report 4456876-5 (Version None)
Quarter: 2004Q3

REPORT INFORMATION
  Report Type: 
  Country: None (occurrence: None)
  Receive Date: 20040921
  Receipt Date: 20040908
  Transmission Date: 20050211
  Serious: Yes (Life-Threatening, Hospitalization)
  Sender: FDA-Public Use
  Company Number: 04P-056-0272952-00

PATIENT
  Age: 78 Year
  Sex: Female

DRUGS (13)
  1. ISOPTIN [Suspect]
     Dosage: 240 MG, 1 IN 1 D, PER ORAL
     Route: 048
     Dates: end: 20040806
  2. RITONAVIR [Suspect]
     Indication: HIV INFECTION
     Dosage: 100 MG, 1 IN 1 D, PER ORAL
     Route: 048
     Dates: start: 20040428, end: 20040806
  3. ATAZANAVIR SULFATE [Suspect]
     Indication: HIV INFECTION
     Dosage: 600 MG, 1 IN 1 D, PER ORAL
     Route: 048
     Dates: start: 20040428, end: 20040806
  4. GABAPENTIN [Concomitant]
  5. BROMAZEPAM [Concomitant]
  6. RELMENIDINE [Concomitant]
  7. CALCIUM OF FOLINATE [Concomitant]
  8. ERYTHROMYCIN [Concomitant]
  9. OMEPRAZOLE [Concomitant]
  10. RISEDRONATE SODIUM [Concomitant]
  11. BACTRIM [Concomitant]
  12. CAPACIT VIT D3 [Concomitant]
  13. FENOFIBRATE (TRICOR) (FENOBRITATE) [Concomitant]

REACTIONS (11)
  - ATRIOVENTRICULAR BLOCK COMPLETE [None]
  - BRADYCARDIA [None]
  - BUNDLE BRANCH BLOCK LEFT [None]
  - CARDIOGENIC SHOCK [None]
  - COMA [None]
  - DRUG INEFFECTIVE [None]
  - DRUG INTERACTION [None]
  - ELECTROCARDIOGRAM QT PROLONGED [None]
  - HYPERTENSION [None]
  - HYPERTROPHIC CARDIOMYOPATHY [None]
  - VENTRICULAR ARRHYTHMIA [None]
